FAERS Safety Report 5725251-5 (Version None)
Quarter: 2008Q2

REPORT INFORMATION
  Report Type: 
  Country: None (occurrence: None)
  Receive Date: 20080501
  Receipt Date: 20070827
  Transmission Date: 20081010
  Serious: Yes (Hospitalization)
  Sender: FDA-Public Use
  Company Number: TR-MERCK-0708TUR00008

PATIENT
  Age: 65 Year
  Sex: Female
  Weight: 58 kg

DRUGS (8)
  1. FOSAMAX [Suspect]
     Indication: OSTEOPOROSIS
     Route: 065
  2. FOSAMAX [Suspect]
     Indication: EMPTY SELLA SYNDROME
     Route: 065
  3. CALCIUM (UNSPECIFIED) [Concomitant]
     Route: 065
  4. ERGOCALCIFEROL [Concomitant]
     Route: 065
  5. CORTICOSTEROIDS (UNSPECIFIED) [Concomitant]
     Indication: BLOOD CORTICOTROPHIN DECREASED
     Route: 065
  6. CORTICOSTEROIDS (UNSPECIFIED) [Concomitant]
     Indication: HYPOTHYROIDISM
     Route: 065
  7. LEVOTHYROXINE SODIUM [Concomitant]
     Indication: BLOOD CORTICOTROPHIN DECREASED
     Route: 065
  8. LEVOTHYROXINE SODIUM [Concomitant]
     Indication: HYPOTHYROIDISM
     Route: 065

REACTIONS (2)
  - BONE PAIN [None]
  - FEMUR FRACTURE [None]
